FAERS Safety Report 6150574-8 (Version None)
Quarter: 2009Q2

REPORT INFORMATION
  Report Type: 
  Country: None (occurrence: None)
  Receive Date: 20090407
  Receipt Date: 20090407
  Transmission Date: 20091009
  Serious: Yes (Death)
  Sender: FDA-Public Use
  Company Number: None

PATIENT
  Sex: Male
  Weight: 68.0396 kg

DRUGS (2)
  1. XANAX [Suspect]
     Dosage: 18.3 NG/ML 1 TIME ORAL
     Route: 048
     Dates: start: 20071026
  2. MONSTER DRINK, MONSTER BEVERAGE CO. [Suspect]
     Dosage: 16 FLUID OUNCES 1 TIME ORAL
     Route: 048
     Dates: start: 20071026

REACTIONS (2)
  - ARRHYTHMIA [None]
  - SUDDEN DEATH [None]
